FAERS Safety Report 5972249-8 (Version None)
Quarter: 2008Q4

REPORT INFORMATION
  Report Type: 
  Country: None (occurrence: None)
  Receive Date: 20081201
  Receipt Date: 20071207
  Transmission Date: 20090506
  Serious: No
  Sender: FDA-Public Use
  Company Number: US-TEVA-165671USA

PATIENT
  Sex: Female

DRUGS (6)
  1. SALBUTAMOL SULFATE INHALATION, 0.09 MG [Suspect]
     Indication: CHRONIC OBSTRUCTIVE PULMONARY DISEASE
     Route: 055
  2. ALPRAZOLAM [Concomitant]
  3. VERAPAMIL [Concomitant]
  4. RANITIDINE [Concomitant]
  5. ALBUTEROL SULFATE [Concomitant]
  6. VITAMINS [Concomitant]

REACTIONS (2)
  - BURNING SENSATION [None]
  - HYPERSENSITIVITY [None]
